FAERS Safety Report 18325854 (Version 1)
Quarter: 2020Q3

REPORT INFORMATION
  Report Type: Spontaneous
  Country: FR (occurrence: FR)
  Receive Date: 20200929
  Receipt Date: 20200929
  Transmission Date: 20201103
  Serious: Yes (Other)
  Sender: FDA-Public Use
  Company Number: FR-MYLANLABS-2020M1082396

PATIENT
  Age: 70 Year
  Sex: Male

DRUGS (5)
  1. OSILODROSTAT [Concomitant]
     Active Substance: OSILODROSTAT
     Dosage: 4 MILLIGRAM, QD OVER 14 DAYS
     Route: 065
  2. PACLITAXEL. [Interacting]
     Active Substance: PACLITAXEL
     Indication: SMALL CELL LUNG CANCER
     Route: 065
  3. KETOCONAZOLE. [Suspect]
     Active Substance: KETOCONAZOLE
     Indication: HYPERADRENOCORTICISM
     Dosage: 1200 MILLIGRAM, QD
     Route: 065
  4. OSILODROSTAT [Concomitant]
     Active Substance: OSILODROSTAT
     Indication: HYPERADRENOCORTICISM
     Dosage: 1 MILLIGRAM, QD
     Route: 065
  5. METYRAPONE [Concomitant]
     Active Substance: METYRAPONE
     Indication: HYPERADRENOCORTICISM
     Dosage: 750 MILLIGRAM, QD
     Route: 065

REACTIONS (3)
  - Off label use [Unknown]
  - Drug interaction [Unknown]
  - Hepatitis [Unknown]
